FAERS Safety Report 9407570 (Version 2)
Quarter: 2013Q3

REPORT INFORMATION
  Report Type: Spontaneous
  Country: US (occurrence: US)
  Receive Date: 20130718
  Receipt Date: 20130829
  Transmission Date: 20140515
  Serious: Yes (Hospitalization, Other)
  Sender: FDA-Public Use
  Company Number: US-FRI-1000046672

PATIENT
  Age: 34 Year
  Sex: Female

DRUGS (9)
  1. VIIBRYD [Suspect]
     Indication: DEPRESSION
     Dosage: 10 MG
     Route: 048
     Dates: start: 20130308, end: 20130315
  2. VIIBRYD [Suspect]
     Indication: PREMENSTRUAL DYSPHORIC DISORDER
     Dosage: 20 MG
     Route: 048
     Dates: start: 20130315, end: 20130322
  3. VIIBRYD [Suspect]
     Indication: DEPRESSION
     Dosage: 40 MG
     Route: 048
     Dates: start: 20130322, end: 20130407
  4. VIIBRYD [Suspect]
     Indication: PREMENSTRUAL DYSPHORIC DISORDER
  5. AMBIEN [Concomitant]
     Dosage: 10 MG
  6. FIORICET [Concomitant]
     Dosage: 50/325/40 MG EVERY 4 HRS PRN
  7. PROZAC [Concomitant]
     Dosage: 90 MG
  8. VIT D [Concomitant]
     Dosage: 50000 IU
  9. METFORMIN [Concomitant]
     Dosage: 1000 MG

REACTIONS (1)
  - Convulsion [Not Recovered/Not Resolved]
